FAERS Safety Report 9579522 (Version 2)
Quarter: 2013Q4

REPORT INFORMATION
  Report Type: Spontaneous
  Country: US (occurrence: US)
  Receive Date: 20131001
  Receipt Date: 20131001
  Transmission Date: 20140711
  Serious: No
  Sender: FDA-Public Use
  Company Number: US-AMGEN-USASP2013016155

PATIENT
  Age: 53 Year
  Sex: Female
  Weight: 72.56 kg

DRUGS (5)
  1. ENBREL [Suspect]
     Dosage: 50 MG, QWK
     Route: 058
  2. KENALOG [Concomitant]
     Dosage: 100 MG, UNK
     Route: 030
     Dates: start: 20130304
  3. PREDNISONE [Concomitant]
     Dosage: 20 MG, 7 DAY TAPER PACK
     Dates: start: 20130305
  4. VICODIN [Concomitant]
     Dosage: 5-500 MG, UNK
  5. ARAVA [Concomitant]
     Dosage: 20 MG, QD

REACTIONS (7)
  - Musculoskeletal pain [Unknown]
  - Pain in extremity [Unknown]
  - Musculoskeletal stiffness [Unknown]
  - Thermal burn [Recovered/Resolved]
  - Fatigue [Unknown]
  - Contusion [Unknown]
  - Injection site pain [Unknown]
